FAERS Safety Report 7330106-9 (Version None)
Quarter: 2011Q1

REPORT INFORMATION
  Report Type: 
  Country: None (occurrence: None)
  Receive Date: 20110303
  Receipt Date: 20110222
  Transmission Date: 20110831
  Serious: Yes (Hospitalization, Other)
  Sender: FDA-Public Use
  Company Number: BR-MEDIMMUNE-MEDI-0012169

PATIENT
  Sex: Female
  Weight: 5.9 kg

DRUGS (5)
  1. SYNAGIS [Suspect]
     Indication: RESPIRATORY DISORDER
  2. VITAMIN AD [Concomitant]
     Route: 048
     Dates: start: 20100406
  3. ASCORBIC ACID [Concomitant]
     Route: 048
     Dates: start: 20100406
  4. FERROUS SULFATE TAB [Concomitant]
     Route: 048
     Dates: start: 20100406
  5. SYNAGIS [Suspect]
     Route: 030
     Dates: start: 20100827, end: 20100901

REACTIONS (14)
  - CARDIAC FAILURE [None]
  - BRONCHIOLITIS [None]
  - COUGH [None]
  - BRONCHOSPASM [None]
  - EXTUBATION [None]
  - RESPIRATORY DISTRESS [None]
  - RESPIRATORY FAILURE [None]
  - RHINORRHOEA [None]
  - CONVULSION [None]
  - LARYNGITIS [None]
  - PAINFUL RESPIRATION [None]
  - HYPERCAPNIA [None]
  - BLOOD PRESSURE INCREASED [None]
  - HYPERTENSION [None]
